FAERS Safety Report 5366893-9 (Version None)
Quarter: 2007Q2

REPORT INFORMATION
  Report Type: 
  Country: None (occurrence: None)
  Receive Date: 20070622
  Receipt Date: 20070228
  Transmission Date: 20071010
  Serious: No
  Sender: FDA-Public Use
  Company Number: US-ASTRAZENECA-2007UW02410

PATIENT
  Age: 40 Year
  Sex: Female
  Weight: 72.6 kg

DRUGS (5)
  1. RHINOCORT [Suspect]
     Indication: PROPHYLAXIS
     Route: 045
     Dates: start: 20070202
  2. TAMOXIFEN CITRATE [Concomitant]
     Route: 048
  3. SINGULAIR [Concomitant]
  4. ZYRTEC [Concomitant]
  5. GUAIFENESIN [Concomitant]

REACTIONS (2)
  - ERYTHEMA [None]
  - SWELLING FACE [None]
